FAERS Safety Report 6882555-0 (Version None)
Quarter: 2010Q3

REPORT INFORMATION
  Report Type: 
  Country: None (occurrence: None)
  Receive Date: 20100729
  Receipt Date: 20100715
  Transmission Date: 20110219
  Serious: Yes (Hospitalization, Other)
  Sender: FDA-Public Use
  Company Number: JP-ROCHE-431706

PATIENT
  Sex: Male

DRUGS (45)
  1. TOCILIZUMAB [Suspect]
     Indication: CASTLEMAN'S DISEASE
     Route: 041
     Dates: start: 20011009, end: 20051222
  2. TOCILIZUMAB [Suspect]
     Route: 041
     Dates: start: 20060119, end: 20060202
  3. TOCILIZUMAB [Suspect]
     Route: 041
     Dates: start: 20060302
  4. TOCILIZUMAB [Suspect]
     Route: 041
     Dates: start: 20081002, end: 20081002
  5. TOCILIZUMAB [Suspect]
     Route: 041
     Dates: start: 20081016, end: 20081027
  6. TOCILIZUMAB [Suspect]
     Route: 041
     Dates: start: 20081107, end: 20081218
  7. TOCILIZUMAB [Suspect]
     Route: 041
     Dates: start: 20090108, end: 20090108
  8. TOCILIZUMAB [Suspect]
     Route: 041
     Dates: start: 20090115, end: 20090115
  9. TOCILIZUMAB [Suspect]
     Route: 041
     Dates: start: 20090127, end: 20090127
  10. TOCILIZUMAB [Suspect]
     Route: 041
     Dates: start: 20090205, end: 20090402
  11. TOCILIZUMAB [Suspect]
     Route: 041
     Dates: start: 20090501, end: 20090625
  12. TOCILIZUMAB [Suspect]
     Route: 041
     Dates: start: 20090721, end: 20090721
  13. TOCILIZUMAB [Suspect]
     Route: 041
     Dates: start: 20090806, end: 20090806
  14. TOCILIZUMAB [Suspect]
     Route: 041
     Dates: start: 20090924
  15. PREDONINE [Suspect]
     Route: 048
     Dates: start: 20090807, end: 20090811
  16. PREDONINE [Suspect]
     Route: 048
     Dates: start: 20090812, end: 20090815
  17. PREDONINE [Suspect]
     Route: 048
     Dates: start: 20090816, end: 20090829
  18. PREDONINE [Suspect]
     Route: 048
     Dates: start: 20090830, end: 20090913
  19. PREDONINE [Suspect]
     Route: 048
     Dates: start: 20090914, end: 20091203
  20. PREDONINE [Suspect]
     Route: 048
     Dates: start: 20091204
  21. POVIDONE IODINE [Concomitant]
     Dosage: FORM: GARGLE. DRUG NAME REPORTED AS ISODINE GARGLE.ROUTE: OROPHARINGEAL NOTE: DOSAGE ADJUSTED.
     Route: 050
     Dates: start: 20011117
  22. AMLODIPINE BESYLATE [Concomitant]
     Route: 048
     Dates: start: 20020411
  23. FERROMIA [Concomitant]
     Route: 048
     Dates: start: 20041112, end: 20060202
  24. INFLUENZA VACCINE [Concomitant]
     Dosage: ROUTE: INJECTABLE (NOS).
     Route: 050
     Dates: start: 20051027, end: 20051027
  25. BONALON [Concomitant]
     Dosage: STRENGTH: 5 MG
     Route: 048
     Dates: start: 20051223, end: 20060206
  26. BONALON [Concomitant]
     Dosage: DRUG: BONALON 35 MG
     Route: 048
     Dates: start: 20090730
  27. ALFAROL [Concomitant]
     Route: 048
     Dates: start: 20051223
  28. ALFAROL [Concomitant]
     Route: 048
     Dates: start: 20090730
  29. ALFACALCIDOL [Concomitant]
     Route: 048
  30. MICARDIS [Concomitant]
     Route: 048
  31. PERSANTINE [Concomitant]
     Dosage: FORM: SUSTAINED RELEASE CAPSULE.
     Route: 048
  32. ALENDRONATE SODIUM [Concomitant]
     Dosage: DRUG NAME: FOSAMAC
     Route: 048
  33. MUCOSIL-10 [Concomitant]
     Dosage: FORM: PERORAL AGENT
     Route: 048
  34. CLARITHROMYCIN [Concomitant]
     Dosage: FORM: PERORAL AGENT
     Route: 048
     Dates: start: 20081107
  35. PURSENNID [Concomitant]
     Route: 048
  36. ISODINE [Concomitant]
     Dosage: ROUTE: OROPHARNGEAL, FORM: GARGLE.
     Route: 050
     Dates: start: 20011117
  37. GOSHAJINKIGAN [Concomitant]
     Dosage: DOSE FORM: PERORAL AGENT
     Route: 048
  38. METHYLPREDNISOLONE SODIUM SUCCINATE [Concomitant]
     Route: 041
     Dates: start: 20090804, end: 20090804
  39. HOKUNALIN [Concomitant]
     Dosage: FORM: TAPE
     Route: 062
     Dates: start: 20090423
  40. SPIRIVA [Concomitant]
     Dosage: DOSE FORM: RESPIRATORY TONIC
     Route: 055
     Dates: start: 20090422
  41. OMEPRAL [Concomitant]
     Route: 048
  42. NEUROTROPIN [Concomitant]
     Dosage: DRUG: AN EXTRACT OBTAINED FROM INFLAMMATORY RABBIT SKIN
     Route: 048
     Dates: start: 20090827
  43. ZOVIRAX [Concomitant]
     Route: 048
     Dates: start: 20090914
  44. BACTRAMIN [Concomitant]
     Route: 048
  45. COTRIM [Concomitant]
     Route: 048
     Dates: start: 20090815, end: 20090925

REACTIONS (16)
  - BLOOD BILIRUBIN INCREASED [None]
  - BLOOD PHOSPHORUS DECREASED [None]
  - CONSTIPATION [None]
  - DERMAL CYST [None]
  - DIARRHOEA [None]
  - HAEMATURIA [None]
  - HERPES ZOSTER [None]
  - LYMPHOCYTE MORPHOLOGY ABNORMAL [None]
  - NEUTROPHIL COUNT DECREASED [None]
  - OEDEMA PERIPHERAL [None]
  - PAIN IN EXTREMITY [None]
  - PNEUMONIA [None]
  - PROTEIN URINE PRESENT [None]
  - RASH [None]
  - STOMATITIS [None]
  - UPPER RESPIRATORY TRACT INFLAMMATION [None]
